FAERS Safety Report 5318045-6 (Version None)
Quarter: 2007Q1

REPORT INFORMATION
  Report Type: 
  Country: None (occurrence: None)
  Receive Date: 20070202
  Receipt Date: 20060728
  Transmission Date: 20070707
  Serious: Yes (Other)
  Sender: FDA-Public Use
  Company Number: 457368

PATIENT
  Age: 25 Year
  Sex: Female

DRUGS (4)
  1. INVIRASE [Suspect]
     Indication: HIV INFECTION
     Dosage: 2000 MG DAILY ORAL
     Route: 048
     Dates: start: 20060104
  2. VIRACEPT [Suspect]
     Indication: HIV INFECTION
     Dosage: 2500 MG DAILY ORAL
     Route: 048
     Dates: start: 20040511, end: 20060103
  3. COMBIVIR [Suspect]
     Indication: HIV INFECTION
     Dosage: ORAL
     Route: 048
     Dates: start: 20040511, end: 20060103
  4. NORVIR [Suspect]
     Indication: HIV INFECTION
     Dosage: 200 MG DAILY ORAL
     Route: 048
     Dates: start: 20060104

REACTIONS (1)
  - DIARRHOEA [None]
